FAERS Safety Report 7360828-5 (Version None)
Quarter: 2011Q1

REPORT INFORMATION
  Report Type: 
  Country: None (occurrence: None)
  Receive Date: 20110318
  Receipt Date: 20110313
  Transmission Date: 20110831
  Serious: Yes (Life-Threatening, Hospitalization)
  Sender: FDA-Public Use
  Company Number: GR-US-EMD SERONO, INC.-7047505

PATIENT
  Age: 60 Year
  Sex: Male

DRUGS (3)
  1. PONSTAN [Concomitant]
  2. REBIF [Suspect]
     Indication: MULTIPLE SCLEROSIS
     Route: 058
     Dates: start: 20020601, end: 20110101
  3. REBIF [Suspect]
     Dates: start: 20110301

REACTIONS (3)
  - RESPIRATORY TRACT INFECTION [None]
  - GASTRIC HAEMORRHAGE [None]
  - PNEUMONIA [None]
